FAERS Safety Report 6071612-7 (Version None)
Quarter: 2009Q1

REPORT INFORMATION
  Report Type: 
  Country: None (occurrence: None)
  Receive Date: 20090205
  Receipt Date: 20090119
  Transmission Date: 20090719
  Serious: Yes (Other)
  Sender: FDA-Public Use
  Company Number: PHHY2009JP00844

PATIENT
  Age: 73 Year
  Sex: Male

DRUGS (1)
  1. VISUDYNE [Suspect]
     Indication: POLYPOIDAL CHOROIDAL VASCULOPATHY

REACTIONS (6)
  - CHOROIDAL NEOVASCULARISATION [None]
  - DISEASE PROGRESSION [None]
  - MACULAR OEDEMA [None]
  - RETINAL DEGENERATION [None]
  - RETINAL HAEMORRHAGE [None]
  - SUBRETINAL FIBROSIS [None]
